FAERS Safety Report 18396330 (Version 1)
Quarter: 2020Q4

REPORT INFORMATION
  Report Type: Spontaneous
  Country: US (occurrence: US)
  Receive Date: 20201019
  Receipt Date: 20201019
  Transmission Date: 20210114
  Serious: No
  Sender: FDA-Public Use
  Company Number: US-TEVA-2020-US-1838928

PATIENT
  Age: 73 Year
  Sex: Female

DRUGS (1)
  1. LISINOPRIL TEVA [Suspect]
     Active Substance: LISINOPRIL
     Route: 065

REACTIONS (2)
  - Feeling abnormal [Unknown]
  - Tinnitus [Not Recovered/Not Resolved]

NARRATIVE: CASE EVENT DATE: 2018
